FAERS Safety Report 8909288 (Version 1)
Quarter: 2012Q4

REPORT INFORMATION
  Report Type: Spontaneous
  Country: US (occurrence: None)
  Receive Date: 20121107
  Receipt Date: 20121107
  Transmission Date: 20130627
  Serious: Yes (Hospitalization, Other)
  Sender: FDA-Public Use
  Company Number: AUR-APL-2012-04636

PATIENT
  Age: 38 Year
  Sex: Male

DRUGS (6)
  1. TERBINAFINE [Suspect]
     Indication: BODY TINEA
     Route: 048
  2. ASPIRIN (ACETYLSALICYLIC ACID) [Concomitant]
  3. PROGRAF (TACROLIMUS) [Concomitant]
  4. LISINOPRIL (LISINOPRIL) [Concomitant]
  5. PREDNISONE (PREDNISONE) [Concomitant]
  6. OMEPRAZOLE (OMEPRAZOLE) [Concomitant]

REACTIONS (6)
  - Pain [None]
  - Tachycardia [None]
  - Abdominal tenderness [None]
  - Lipase increased [None]
  - Leukocytosis [None]
  - Pancreatitis [None]
